FAERS Safety Report 8157405-5 (Version None)
Quarter: 2012Q1

REPORT INFORMATION
  Report Type: 
  Country: None (occurrence: None)
  Receive Date: 20120222
  Receipt Date: 20120220
  Transmission Date: 20120608
  Serious: No
  Sender: FDA-Public Use
  Company Number: US-PFIZER INC-2012044804

PATIENT
  Sex: Male
  Weight: 90.703 kg

DRUGS (2)
  1. AMOXICILLIN [Concomitant]
     Dosage: UNK
  2. LORATADINE AND PSEUDOEPHEDRINE SULFATE [Suspect]
     Indication: SINUS CONGESTION
     Dosage: 5/120 MG, UNK
     Route: 048
     Dates: start: 20120219, end: 20120220

REACTIONS (2)
  - INCORRECT DOSE ADMINISTERED [None]
  - INSOMNIA [None]
